FAERS Safety Report 7821616-6 (Version None)
Quarter: 2011Q4

REPORT INFORMATION
  Report Type: 
  Country: None (occurrence: None)
  Receive Date: 20111018
  Receipt Date: 20101015
  Transmission Date: 20120403
  Serious: No
  Sender: FDA-Public Use
  Company Number: US-ASTRAZENECA-2010SE48956

PATIENT
  Age: 22325 Day
  Sex: Male

DRUGS (3)
  1. SYMBICORT [Suspect]
     Indication: PULMONARY CONGESTION
     Dosage: 160/4.5 UG - 2, TWO TIMES A DAY
     Route: 055
     Dates: start: 20101008
  2. ZITHROMAX [Concomitant]
  3. SYMBICORT [Suspect]
     Indication: WHEEZING
     Dosage: 160/4.5 UG - 2, TWO TIMES A DAY
     Route: 055
     Dates: start: 20101008

REACTIONS (2)
  - DYSPNOEA [None]
  - DRUG DOSE OMISSION [None]
